FAERS Safety Report 6227419-0 (Version None)
Quarter: 2009Q2

REPORT INFORMATION
  Report Type: 
  Country: None (occurrence: None)
  Receive Date: 20090610
  Receipt Date: 20090610
  Transmission Date: 20091009
  Serious: No
  Sender: FDA-Public Use
  Company Number: None

PATIENT
  Age: 53 Year
  Sex: Male
  Weight: 92.9874 kg

DRUGS (1)
  1. ZICAM NASAL SPRAY [Suspect]
     Indication: SEASONAL ALLERGY
     Dosage: 2 SQUIRTS PER NOSTRAL ONCE A DAY NASAL
     Route: 045
     Dates: start: 20090418, end: 20090426

REACTIONS (4)
  - DYSGEUSIA [None]
  - HYPOGEUSIA [None]
  - HYPOSMIA [None]
  - PAROSMIA [None]
